FAERS Safety Report 23515846 (Version 1)
Quarter: 2024Q1

REPORT INFORMATION
  Report Type: Report from Study
  Country: US (occurrence: None)
  Receive Date: 20240213
  Receipt Date: 20240213
  Transmission Date: 20240410
  Serious: Yes (Other)
  Sender: FDA-Public Use
  Company Number: 2024A031573

PATIENT
  Sex: Male
  Weight: 103 kg

DRUGS (1)
  1. TAGRISSO [Suspect]
     Active Substance: OSIMERTINIB
     Indication: Non-small cell lung cancer
     Route: 048
     Dates: start: 20230830

REACTIONS (3)
  - Pyrexia [Unknown]
  - Deep vein thrombosis [Unknown]
  - Night sweats [Unknown]
